FAERS Safety Report 4793770-4 (Version None)
Quarter: 2005Q4

REPORT INFORMATION
  Report Type: 
  Country: None (occurrence: None)
  Receive Date: 20051011
  Receipt Date: 20050929
  Transmission Date: 20060501
  Serious: Yes (Death, Life-Threatening, Hospitalization)
  Sender: FDA-Public Use
  Company Number: JP-JNJFOC-20050300265

PATIENT
  Sex: Female
  Weight: 45 kg

DRUGS (21)
  1. REMICADE [Suspect]
     Route: 042
  2. REMICADE [Suspect]
     Route: 042
  3. REMICADE [Suspect]
     Route: 042
  4. REMICADE [Suspect]
     Indication: RHEUMATOID ARTHRITIS
     Route: 042
  5. RHEUMATREX [Suspect]
     Indication: RHEUMATOID ARTHRITIS
     Route: 048
  6. PREDNISOLONE [Suspect]
     Indication: RHEUMATOID ARTHRITIS
     Route: 048
  7. LOXONIN [Concomitant]
     Indication: RHEUMATOID ARTHRITIS
     Route: 048
  8. ALOSENN [Concomitant]
     Route: 048
  9. ALOSENN [Concomitant]
     Route: 048
  10. ALOSENN [Concomitant]
     Route: 048
  11. ALOSENN [Concomitant]
     Route: 048
  12. ALOSENN [Concomitant]
     Indication: CONSTIPATION
     Route: 048
  13. ZANTAC [Concomitant]
     Indication: GASTRITIS
     Route: 048
  14. SELBEX [Concomitant]
     Indication: GASTRITIS
     Route: 048
  15. ISONIAZID [Concomitant]
     Route: 048
  16. ISONIAZID [Concomitant]
     Indication: ANTIBIOTIC PROPHYLAXIS
     Route: 048
  17. PYRIDOXAL PHOSPHATE [Concomitant]
     Indication: ANTIBIOTIC PROPHYLAXIS
     Route: 048
  18. NORVASC [Concomitant]
     Indication: HYPERTENSION
     Route: 048
  19. ZYRTEC [Concomitant]
     Indication: PROPHYLAXIS
     Route: 048
  20. GASTROM [Concomitant]
     Indication: GASTRITIS
     Route: 048
  21. BROTIZOLAM [Concomitant]
     Indication: INSOMNIA
     Route: 048

REACTIONS (20)
  - ACUTE RESPIRATORY DISTRESS SYNDROME [None]
  - BLEEDING TIME PROLONGED [None]
  - CARDIAC FAILURE [None]
  - CLOSTRIDIUM COLITIS [None]
  - CLOSTRIDIUM DIFFICILE TOXIN TEST POSITIVE [None]
  - CYTOMEGALOVIRUS INFECTION [None]
  - DISSEMINATED INTRAVASCULAR COAGULATION [None]
  - HAEMOGLOBIN DECREASED [None]
  - HYPOPROTEINAEMIA [None]
  - LIVER DISORDER [None]
  - METHICILLIN-RESISTANT STAPHYLOCOCCAL AUREUS TEST [None]
  - MULTI-ORGAN FAILURE [None]
  - OPPORTUNISTIC INFECTION [None]
  - PANCYTOPENIA [None]
  - PNEUMOCYSTIS JIROVECI PNEUMONIA [None]
  - PNEUMONIA STAPHYLOCOCCAL [None]
  - PNEUMOTHORAX [None]
  - PSEUDOMONAS INFECTION [None]
  - PULMONARY OEDEMA [None]
  - SEPSIS [None]
